FAERS Safety Report 7101717-0 (Version None)
Quarter: 2010Q4

REPORT INFORMATION
  Report Type: 
  Country: None (occurrence: None)
  Receive Date: 20101109
  Receipt Date: 20100317
  Transmission Date: 20110411
  Serious: Yes (Death)
  Sender: FDA-Public Use
  Company Number: UTC-001576

PATIENT
  Sex: Female

DRUGS (1)
  1. TYVASO [Suspect]
     Dosage: INHALATION
     Route: 055

REACTIONS (2)
  - DISEASE COMPLICATION [None]
  - PNEUMONIA [None]
